FAERS Safety Report 13784636 (Version 3)
Quarter: 2019Q1

REPORT INFORMATION
  Report Type: Spontaneous
  Country: US (occurrence: US)
  Receive Date: 20170724
  Receipt Date: 20190303
  Transmission Date: 20190417
  Serious: No
  Sender: FDA-Public Use
  Company Number: US-IMPAX LABORATORIES, INC-2017-IPXL-01352

PATIENT
  Age: 63 Year
  Sex: Female

DRUGS (1)
  1. RYTARY [Suspect]
     Active Substance: CARBIDOPA\LEVODOPA
     Indication: PARKINSON^S DISEASE
     Dosage: 48.75/195 MG, UNK
     Route: 048
     Dates: start: 2015

REACTIONS (7)
  - Prescribed overdose [Unknown]
  - Fall [Recovering/Resolving]
  - Therapeutic response shortened [Unknown]
  - Drug effect delayed [Unknown]
  - Back injury [Recovering/Resolving]
  - Respiration abnormal [Not Recovered/Not Resolved]
  - Dizziness [Not Recovered/Not Resolved]

NARRATIVE: CASE EVENT DATE: 201612
